FAERS Safety Report 6310855-1 (Version None)
Quarter: 2009Q3

REPORT INFORMATION
  Report Type: 
  Country: None (occurrence: None)
  Receive Date: 20090807
  Receipt Date: 20090727
  Transmission Date: 20100115
  Serious: Yes (Hospitalization)
  Sender: FDA-Public Use
  Company Number: AEUSA200900229

PATIENT
  Age: 62 Year
  Sex: Male
  Weight: 76.2043 kg

DRUGS (11)
  1. PROLASTIN [Suspect]
     Indication: ALPHA-1 ANTI-TRYPSIN DEFICIENCY
     Dosage: 9304 MG; 1X; IV
     Route: 042
     Dates: start: 20090217, end: 20090702
  2. ALBUTEROL [Concomitant]
  3. BETAXOLOL [Concomitant]
  4. ETHAMBUTOL [Concomitant]
  5. FORADIL [Concomitant]
  6. ROBITUSSIN /00288801/ [Concomitant]
  7. ATROVENT [Concomitant]
  8. MOMETASONE FUROATE [Concomitant]
  9. RIFAMPIN [Concomitant]
  10. VARDENAFIL [Concomitant]
  11. VERAPAMIL [Concomitant]

REACTIONS (12)
  - ABDOMINAL PAIN [None]
  - ANTIPHOSPHOLIPID ANTIBODIES POSITIVE [None]
  - ANTIPHOSPHOLIPID SYNDROME [None]
  - C-REACTIVE PROTEIN INCREASED [None]
  - CEREBROVASCULAR ACCIDENT [None]
  - EMBOLISM [None]
  - HYPERCOAGULATION [None]
  - LOBAR PNEUMONIA [None]
  - PULMONARY EMBOLISM [None]
  - RENAL INFARCT [None]
  - SPLENIC INFARCTION [None]
  - UPPER RESPIRATORY TRACT INFECTION [None]
